FAERS Safety Report 4553608-7 (Version None)
Quarter: 2004Q4

REPORT INFORMATION
  Report Type: 
  Country: None (occurrence: None)
  Receive Date: 20041227
  Receipt Date: 20041029
  Transmission Date: 20050328
  Serious: No
  Sender: FDA-Public Use
  Company Number: 04P-163-0279372-00

PATIENT
  Age: 66 Year
  Sex: Male
  Weight: 118.2 kg

DRUGS (15)
  1. HUMIRA [Suspect]
     Indication: RHEUMATOID ARTHRITIS
     Dosage: 40 MG, 1 IN 2 WK, SUBCUTANEOUS
     Route: 058
     Dates: start: 20041001, end: 20041019
  2. WARFARIN SODIUM [Concomitant]
  3. FUROSEMIDE [Concomitant]
  4. ACTOSE [Concomitant]
  5. AMIODARONE [Concomitant]
  6. LISINOPRIL [Concomitant]
  7. VALSARTAN [Concomitant]
  8. CARVEDILOL [Concomitant]
  9. DIGOXIN [Concomitant]
  10. ATORVASTATIN [Concomitant]
  11. PREDNISONE [Concomitant]
  12. COLCHICINE [Concomitant]
  13. FOLIC ACID [Concomitant]
  14. METHOTREXATE SODIUM [Concomitant]
  15. VICODIN [Concomitant]

REACTIONS (1)
  - EXCORIATION [None]
